FAERS Safety Report 18571993 (Version 1)
Quarter: 2020Q4

REPORT INFORMATION
  Report Type: Spontaneous
  Country: PL (occurrence: PL)
  Receive Date: 20201202
  Receipt Date: 20201202
  Transmission Date: 20210114
  Serious: Yes (Death, Other)
  Sender: FDA-Public Use
  Company Number: PL-B.I. PHARMACEUTICALS,INC./RIDGEFIELD-2020-BI-065049

PATIENT
  Age: 61 Year
  Sex: Female

DRUGS (1)
  1. PRADAXA [Suspect]
     Active Substance: DABIGATRAN ETEXILATE MESYLATE
     Indication: PRODUCT USED FOR UNKNOWN INDICATION
     Route: 048

REACTIONS (6)
  - Gastrointestinal haemorrhage [Fatal]
  - International normalised ratio increased [Not Recovered/Not Resolved]
  - Shock [Fatal]
  - Cardiac arrest [Fatal]
  - Haematochezia [Not Recovered/Not Resolved]
  - Metabolic acidosis [Fatal]

NARRATIVE: CASE EVENT DATE: 20201108
